FAERS Safety Report 17994787 (Version 1)
Quarter: 2020Q3

REPORT INFORMATION
  Report Type: Spontaneous
  Country: CA (occurrence: CA)
  Receive Date: 20200708
  Receipt Date: 20200708
  Transmission Date: 20201103
  Serious: Yes (Other)
  Sender: FDA-Public Use
  Company Number: CA-ACCORD-188435

PATIENT
  Age: 76 Year
  Sex: Female

DRUGS (36)
  1. REMICADE [Suspect]
     Active Substance: INFLIXIMAB
     Indication: RHEUMATOID ARTHRITIS
     Dosage: POWDER FOR SOLUTION INTRAVENOUS
  2. DESOXIMETASONE. [Concomitant]
     Active Substance: DESOXIMETASONE
  3. OMNARIS [Concomitant]
     Active Substance: CICLESONIDE
     Dosage: SPRAY, METERED DOSE
  4. SYNTHROID [Concomitant]
     Active Substance: LEVOTHYROXINE SODIUM
  5. ARAVA [Suspect]
     Active Substance: LEFLUNOMIDE
     Indication: PRODUCT USED FOR UNKNOWN INDICATION
  6. DILAUDID [Concomitant]
     Active Substance: HYDROMORPHONE HYDROCHLORIDE
  7. HYDROMORPHONE/HYDROMORPHONE HYDROCHLORIDE [Concomitant]
     Active Substance: HYDROMORPHONE
  8. PANTOLOC [Concomitant]
     Active Substance: PANTOPRAZOLE SODIUM
  9. PANTOPRAZOLE [Concomitant]
     Active Substance: PANTOPRAZOLE
  10. METHOTREXATE. [Suspect]
     Active Substance: METHOTREXATE
     Indication: RHEUMATOID ARTHRITIS
  11. HYDROXYCHLOROQUINE [Suspect]
     Active Substance: HYDROXYCHLOROQUINE
     Indication: RHEUMATOID ARTHRITIS
  12. ANAKINRA [Concomitant]
     Active Substance: ANAKINRA
  13. ATIVAN [Concomitant]
     Active Substance: LORAZEPAM
  14. BENADRYL [Concomitant]
     Active Substance: DIPHENHYDRAMINE HYDROCHLORIDE
  15. NORFLEX [Concomitant]
     Active Substance: ORPHENADRINE CITRATE
  16. URISPAS [Concomitant]
     Active Substance: FLAVOXATE HYDROCHLORIDE
  17. VAGIFEM [Concomitant]
     Active Substance: ESTRADIOL
     Dosage: VAGINAL SUPPOSITORY
  18. ACTEMRA [Suspect]
     Active Substance: TOCILIZUMAB
     Indication: RHEUMATOID ARTHRITIS
  19. ORENCIA [Suspect]
     Active Substance: ABATACEPT
     Indication: RHEUMATOID ARTHRITIS
  20. DARIFENACIN/DARIFENACIN HYDROBROMIDE [Concomitant]
  21. LASIX [Concomitant]
     Active Substance: FUROSEMIDE
  22. RESTASIS [Concomitant]
     Active Substance: CYCLOSPORINE
     Dosage: EMULSION
  23. TRIMETHOPRIM. [Concomitant]
     Active Substance: TRIMETHOPRIM
  24. OXYNEO [Concomitant]
     Active Substance: OXYCODONE
     Dosage: TABLET (EXTENDED? RELEASE)
  25. KENALOG [Concomitant]
     Active Substance: TRIAMCINOLONE ACETONIDE
     Dosage: SUSPENSION INTRA? ARTICULAR
  26. RITUXIMAB. [Concomitant]
     Active Substance: RITUXIMAB
     Route: 041
  27. ENBREL [Suspect]
     Active Substance: ETANERCEPT
     Indication: RHEUMATOID ARTHRITIS
  28. XELJANZ [Suspect]
     Active Substance: TOFACITINIB CITRATE
     Indication: PRODUCT USED FOR UNKNOWN INDICATION
  29. KADIAN [Concomitant]
     Active Substance: MORPHINE SULFATE
     Dosage: CAPSULE,SUSTAINED RELEASE
  30. LOPERAMIDE [Concomitant]
     Active Substance: LOPERAMIDE
  31. ORPHENADRINE [Concomitant]
     Active Substance: ORPHENADRINE
  32. HYDROXYCHLOROQUINE [Suspect]
     Active Substance: HYDROXYCHLOROQUINE
     Indication: RHEUMATOID ARTHRITIS
  33. HUMIRA [Suspect]
     Active Substance: ADALIMUMAB
     Indication: RHEUMATOID ARTHRITIS
     Dosage: SOLUTION SUBCUTANEOUS
  34. SODIUM AUROTHIOMALATE [Suspect]
     Active Substance: GOLD SODIUM THIOMALATE
     Indication: PRODUCT USED FOR UNKNOWN INDICATION
     Route: 030
  35. PARACETAMOL [Concomitant]
     Active Substance: ACETAMINOPHEN
  36. CODEINE [Concomitant]
     Active Substance: CODEINE

REACTIONS (19)
  - Synovitis [Unknown]
  - Therapeutic product effect incomplete [Unknown]
  - Joint swelling [Unknown]
  - Drug ineffective [Unknown]
  - Fibromyalgia [Unknown]
  - Peripheral swelling [Unknown]
  - Arthritis [Unknown]
  - Herpes zoster [Unknown]
  - Leukopenia [Unknown]
  - Drug hypersensitivity [Unknown]
  - Pneumonia viral [Unknown]
  - Soft tissue disorder [Unknown]
  - Anaemia [Unknown]
  - Infection [Unknown]
  - Liver function test abnormal [Unknown]
  - Product use issue [Unknown]
  - Arthralgia [Unknown]
  - Blood cholesterol increased [Unknown]
  - Oral pain [Unknown]
